FAERS Safety Report 4852941-9 (Version None)
Quarter: 2005Q4

REPORT INFORMATION
  Report Type: 
  Country: None (occurrence: None)
  Receive Date: 20051212
  Receipt Date: 20051123
  Transmission Date: 20060501
  Serious: Yes (Hospitalization)
  Sender: FDA-Public Use
  Company Number: CERZ-11064

PATIENT
  Age: 75 Year
  Sex: Female

DRUGS (3)
  1. CEREZYME [Suspect]
     Indication: GAUCHER'S DISEASE
     Dosage: 3400 UNITS Q2WKS IV
     Route: 042
     Dates: start: 19970401
  2. NADOLOL [Concomitant]
  3. ISOSORBIDE [Concomitant]

REACTIONS (2)
  - HEART RATE DECREASED [None]
  - URINARY TRACT INFECTION [None]
